FAERS Safety Report 24910169 (Version 1)
Quarter: 2025Q1

REPORT INFORMATION
  Report Type: Spontaneous
  Country: GB (occurrence: GB)
  Receive Date: 20250131
  Receipt Date: 20250131
  Transmission Date: 20250409
  Serious: Yes (Death, Hospitalization)
  Sender: TEVA
  Company Number: GB-ASTRAZENECA-202501GBR018170GB

PATIENT
  Sex: Female
  Weight: 92 kg

DRUGS (1)
  1. FULVESTRANT [Suspect]
     Active Substance: FULVESTRANT
     Indication: Breast cancer metastatic
     Route: 030
     Dates: start: 20241003, end: 20241031

REACTIONS (1)
  - Hypercalcaemia [Fatal]

NARRATIVE: CASE EVENT DATE: 20241127
